FAERS Safety Report 16315209 (Version 4)
Quarter: 2020Q2

REPORT INFORMATION
  Report Type: Spontaneous
  Country: US (occurrence: US)
  Receive Date: 20190515
  Receipt Date: 20200519
  Transmission Date: 20200713
  Serious: Yes (Hospitalization)
  Sender: FDA-Public Use
  Company Number: US-ACTELION-A-US2019-190379

PATIENT
  Age: 47 Year
  Sex: Female
  Weight: 78.91 kg

DRUGS (8)
  1. FOLLISTIM [Concomitant]
     Active Substance: FOLLITROPIN
  2. OPSUMIT [Suspect]
     Active Substance: MACITENTAN
     Indication: PULMONARY ARTERIAL HYPERTENSION
     Dosage: 10 MG, QD
     Route: 048
     Dates: start: 20190321
  3. LORATADINE. [Concomitant]
     Active Substance: LORATADINE
  4. SILDENAFIL. [Concomitant]
     Active Substance: SILDENAFIL
  5. TADALAFIL. [Concomitant]
     Active Substance: TADALAFIL
  6. AZATHIOPRINE. [Concomitant]
     Active Substance: AZATHIOPRINE
  7. OMEPRAZOLE. [Concomitant]
     Active Substance: OMEPRAZOLE
  8. PREGNYL [Concomitant]
     Active Substance: CHORIOGONADOTROPIN ALFA

REACTIONS (18)
  - Pneumonia [Unknown]
  - Palpitations [Unknown]
  - Weight increased [Unknown]
  - Swelling of eyelid [Unknown]
  - Heart rate increased [Unknown]
  - Oxygen consumption increased [Unknown]
  - Pyrexia [Unknown]
  - Dyspnoea [Unknown]
  - Cough [Unknown]
  - Stress [Unknown]
  - Product dose omission [Unknown]
  - Feeling abnormal [Unknown]
  - Pulmonary arterial pressure increased [Unknown]
  - Insomnia [Unknown]
  - Memory impairment [Unknown]
  - Axillary pain [Not Recovered/Not Resolved]
  - Hypoaesthesia [Unknown]
  - Ocular hyperaemia [Unknown]

NARRATIVE: CASE EVENT DATE: 20190501
